FAERS Safety Report 9026215 (Version 2)
Quarter: 2013Q1

REPORT INFORMATION
  Report Type: Report from Study
  Country: CA (occurrence: CA)
  Receive Date: 20130123
  Receipt Date: 20130206
  Transmission Date: 20140127
  Serious: Yes (Death, Disabling)
  Sender: FDA-Public Use
  Company Number: PHHY2013CA005951

PATIENT
  Age: 84 Year
  Sex: Female

DRUGS (7)
  1. CLOZARIL [Suspect]
     Indication: PSYCHOTIC DISORDER
     Dosage: UNK UKN, UNK
     Dates: start: 20120327
  2. CLOZARIL [Suspect]
     Dosage: 100 , BID AND 200 QHS
     Route: 048
     Dates: start: 20120402
  3. VITAMIN B12 [Concomitant]
     Dosage: 1 MG, QMO
     Dates: start: 20111214
  4. LACTULOSA [Concomitant]
     Dosage: 30 ML
     Dates: start: 20121023
  5. VITAMIN B6 [Concomitant]
     Dosage: 50 MG
     Dates: start: 20120911
  6. TYLENOL [Concomitant]
     Dosage: 500 UKN
     Dates: start: 20111013
  7. PREVACID [Concomitant]
     Dosage: 30 MG, UNK
     Dates: start: 20111013

REACTIONS (2)
  - Death [Fatal]
  - Pneumonia [Unknown]
